FAERS Safety Report 7864843-4 (Version None)
Quarter: 2011Q4

REPORT INFORMATION
  Report Type: 
  Country: None (occurrence: None)
  Receive Date: 20111028
  Receipt Date: 20100902
  Transmission Date: 20120403
  Serious: No
  Sender: FDA-Public Use
  Company Number: US-GLAXOSMITHKLINE-A0879248A

PATIENT
  Sex: Female

DRUGS (2)
  1. UNSPECIFIED INHALER [Concomitant]
  2. ADVAIR DISKUS 100/50 [Suspect]
     Indication: ASTHMA
     Route: 055

REACTIONS (4)
  - INHALATION THERAPY [None]
  - THROAT TIGHTNESS [None]
  - HEADACHE [None]
  - PRODUCT QUALITY ISSUE [None]
